FAERS Safety Report 9288067 (Version 1)
Quarter: 2013Q1

REPORT INFORMATION
  Report Type: Spontaneous
  Country: US (occurrence: None)
  Receive Date: 20120914
  Receipt Date: 20120914
  Transmission Date: 20140127
  Serious: Yes (Hospitalization)
  Sender: FDA-Public Use
  Company Number: ADR-2012280104

PATIENT
  Age: 60 Year
  Sex: Female

DRUGS (12)
  1. TOPIRAMATE [Suspect]
     Route: 048
  2. LIPITOR [Concomitant]
  3. PROZOSIN [Concomitant]
  4. CLONAZEPAM [Concomitant]
  5. CITALOPRAM 40 MG [Concomitant]
  6. METHYLERGONOVINE [Concomitant]
  7. LEVOTHYROXINE [Concomitant]
  8. GABAPENTIN CAPSULES [Concomitant]
  9. VICODIN [Concomitant]
  10. CAMBIA [Concomitant]
  11. EMBREL INJ [Concomitant]
  12. CHLORPROMAZINE [Concomitant]

REACTIONS (3)
  - Speech disorder [None]
  - Dysphemia [None]
  - Tremor [None]
